FAERS Safety Report 5465101-8 (Version None)
Quarter: 2007Q3

REPORT INFORMATION
  Report Type: 
  Country: None (occurrence: None)
  Receive Date: 20070820
  Receipt Date: 20070612
  Transmission Date: 20080115
  Serious: No
  Sender: FDA-Public Use
  Company Number: TPA2007A01302

PATIENT
  Age: 65 Year
  Sex: Female
  Weight: 86.1834 kg

DRUGS (6)
  1. ROZEREM [Suspect]
     Indication: INSOMNIA
     Dosage: 8 MG, HS, PER ORAL
     Route: 048
     Dates: start: 20070608
  2. AMOXICILLIN [Concomitant]
  3. EFFEXOR [Concomitant]
  4. HYDROCHLOROTHIAZIDE [Concomitant]
  5. MELATONIN (MELATONIN) [Concomitant]
  6. AMBIEN CR [Concomitant]

REACTIONS (1)
  - DRUG INEFFECTIVE [None]
